FAERS Safety Report 10248268 (Version 1)
Quarter: 2014Q2

REPORT INFORMATION
  Report Type: Spontaneous
  Country: US (occurrence: US)
  Receive Date: 20140620
  Receipt Date: 20140620
  Transmission Date: 20141212
  Serious: No
  Sender: FDA-Public Use
  Company Number: US-009507513-1406USA008572

PATIENT
  Age: 71 Year
  Sex: Female
  Weight: 13.61 kg

DRUGS (3)
  1. JANUVIA [Suspect]
     Indication: TYPE 2 DIABETES MELLITUS
     Dosage: 100MG,ONCE DAILY
     Route: 048
     Dates: start: 201401, end: 20140611
  2. THERAPY UNSPECIFIED [Suspect]
     Indication: RASH
     Dosage: UNK
     Dates: start: 2014
  3. METFORMIN [Concomitant]

REACTIONS (4)
  - Rash [Not Recovered/Not Resolved]
  - Acne [Not Recovered/Not Resolved]
  - Drug ineffective [Not Recovered/Not Resolved]
  - Weight decreased [Not Recovered/Not Resolved]
